FAERS Safety Report 4325238-3 (Version None)
Quarter: 2004Q1

REPORT INFORMATION
  Report Type: 
  Country: None (occurrence: None)
  Receive Date: 20040324
  Receipt Date: 20040310
  Transmission Date: 20041129
  Serious: Yes (Hospitalization)
  Sender: FDA-Public Use
  Company Number: UK066551

PATIENT
  Sex: Female
  Weight: 1.7 kg

DRUGS (13)
  1. NEUPOGEN [Suspect]
     Indication: CHEMOTHERAPY
     Dosage: TPL
     Dates: start: 20031223, end: 20031225
  2. CYCLOPHOSPHAMIDE [Suspect]
     Dates: start: 20031211
  3. DOXORUBICIN HYDROCHLORIDE [Suspect]
     Dates: start: 20031211
  4. OMEPRAZOLE [Suspect]
     Dosage: 40 MCG
     Dates: start: 20031223, end: 20031225
  5. METHOTREXATE [Suspect]
     Dates: start: 20031211
  6. CYTARABINE [Suspect]
     Dosage: TPL
     Dates: start: 20031211
  7. PREDNISONE [Concomitant]
  8. VINCRISTINE SULFATE [Concomitant]
  9. PIPERACILLIN/TAZOBACTAM [Concomitant]
  10. RED BLOOD CELLS [Concomitant]
  11. PLATELETS [Concomitant]
  12. METHYLPREDNISOLONE ACETATE [Concomitant]
  13. METHYLPREDNISOLONE SODIUM SUCCINATE [Concomitant]

REACTIONS (7)
  - CHOLESTASIS [None]
  - DRUG EXPOSURE VIA BREAST MILK [None]
  - GAMMA-GLUTAMYLTRANSFERASE INCREASED [None]
  - JAUNDICE NEONATAL [None]
  - MATERNAL DRUGS AFFECTING FOETUS [None]
  - NEONATAL DISORDER [None]
  - PREMATURE BABY [None]
